FAERS Safety Report 23604794 (Version 1)
Quarter: 2024Q1

REPORT INFORMATION
  Report Type: Spontaneous
  Country: US (occurrence: US)
  Receive Date: 20240307
  Receipt Date: 20240307
  Transmission Date: 20240410
  Serious: Yes (Death)
  Sender: FDA-Public Use
  Company Number: US-BAYER-2024A034667

PATIENT

DRUGS (2)
  1. CIPROFLOXACIN [Suspect]
     Active Substance: CIPROFLOXACIN
  2. LEVAQUIN [Concomitant]
     Active Substance: LEVOFLOXACIN

REACTIONS (1)
  - Death [Fatal]
